FAERS Safety Report 9798221 (Version 1)
Quarter: 2014Q1

REPORT INFORMATION
  Report Type: Spontaneous
  Country: US (occurrence: None)
  Receive Date: 20140103
  Receipt Date: 20140103
  Transmission Date: 20141002
  Serious: Yes (Other)
  Sender: FDA-Public Use
  Company Number: None

PATIENT
  Age: 63 Year
  Sex: Male
  Weight: 79.38 kg

DRUGS (3)
  1. DICLOFENAC [Suspect]
     Indication: INFLAMMATION
     Dosage: 1 PILL
     Route: 048
     Dates: start: 20131205, end: 20131206
  2. ASPIRIN [Concomitant]
  3. CENTRUM SENIOR VITAMIN [Concomitant]

REACTIONS (2)
  - Abdominal discomfort [None]
  - Diarrhoea [None]
